FAERS Safety Report 9438692 (Version 1)
Quarter: 2013Q3

REPORT INFORMATION
  Report Type: Spontaneous
  Country: US (occurrence: US)
  Receive Date: 20130802
  Receipt Date: 20130802
  Transmission Date: 20140515
  Serious: Yes (Other)
  Sender: FDA-Public Use
  Company Number: CHPA2013US012152

PATIENT
  Age: 86 Year
  Sex: Female

DRUGS (1)
  1. PERDIEM OVERNIGHT RELIEF PILLS [Suspect]
     Indication: CONSTIPATION
     Dosage: 1 DF, QD
     Route: 048
     Dates: end: 201307

REACTIONS (5)
  - Age-related macular degeneration [Not Recovered/Not Resolved]
  - Drug dependence [Not Recovered/Not Resolved]
  - Disease recurrence [Recovered/Resolved]
  - Constipation [Recovered/Resolved]
  - Incorrect drug administration duration [Unknown]
